FAERS Safety Report 24902415 (Version 1)
Quarter: 2025Q1

REPORT INFORMATION
  Report Type: Spontaneous
  Country: FR (occurrence: FR)
  Receive Date: 20250130
  Receipt Date: 20250130
  Transmission Date: 20250408
  Serious: Yes (Other)
  Sender: CSL BEHRING
  Company Number: None

PATIENT
  Age: 30 Year
  Sex: Female
  Weight: 51 kg

DRUGS (5)
  1. PRIVIGEN [Suspect]
     Active Substance: HUMAN IMMUNOGLOBULIN G
     Indication: Mixed connective tissue disease
     Dosage: 25 G, QD
     Route: 042
     Dates: start: 20241113, end: 20241115
  2. PRIVIGEN [Suspect]
     Active Substance: HUMAN IMMUNOGLOBULIN G
     Indication: Off label use
     Dosage: 25 G, QD
     Route: 042
     Dates: start: 20241211, end: 20241213
  3. SAPHNELO [Suspect]
     Active Substance: ANIFROLUMAB-FNIA
     Indication: Mixed connective tissue disease
     Route: 042
     Dates: start: 20241113
  4. SAPHNELO [Suspect]
     Active Substance: ANIFROLUMAB-FNIA
     Route: 042
     Dates: start: 20241211
  5. PREDNISONE [Concomitant]
     Active Substance: PREDNISONE

REACTIONS (5)
  - Musculoskeletal stiffness [Recovered/Resolved]
  - Headache [Recovered/Resolved]
  - Visual impairment [Recovered/Resolved]
  - Tinnitus [Recovered/Resolved]
  - Off label use [Unknown]

NARRATIVE: CASE EVENT DATE: 20241113
